FAERS Safety Report 9358697 (Version 4)
Quarter: 2013Q3

REPORT INFORMATION
  Report Type: Report from Study
  Country: DE (occurrence: DE)
  Receive Date: 20130620
  Receipt Date: 20130813
  Transmission Date: 20140515
  Serious: Yes (Hospitalization)
  Sender: FDA-Public Use
  Company Number: DE-GLAXOSMITHKLINE-B0900421A

PATIENT
  Age: 76 Year
  Sex: Female
  Weight: 91 kg

DRUGS (6)
  1. TOPOTECAN [Suspect]
     Indication: OVARIAN CANCER
     Dosage: 1.93MG PER DAY
     Route: 042
     Dates: start: 20130603
  2. BLINDED STUDY MEDICATION [Suspect]
     Indication: OVARIAN CANCER
     Route: 048
     Dates: start: 20130608
  3. PEGFILGRASTIM [Suspect]
     Dosage: 6MG PER DAY
     Route: 058
     Dates: start: 20130427, end: 20130427
  4. DARBEPOETIN ALFA [Concomitant]
  5. FILGRASTIM [Concomitant]
  6. CLEXANE [Concomitant]
     Dates: start: 20130610

REACTIONS (3)
  - Embolism [Recovered/Resolved]
  - Dyspnoea [Unknown]
  - Pain in extremity [Unknown]
